FAERS Safety Report 10204471 (Version 1)
Quarter: 2014Q2

REPORT INFORMATION
  Report Type: Spontaneous
  Country: US (occurrence: US)
  Receive Date: 20140529
  Receipt Date: 20140529
  Transmission Date: 20141212
  Serious: No
  Sender: FDA-Public Use
  Company Number: US-SANOFI-AVENTIS-2013SA063221

PATIENT
  Age: 67 Year
  Sex: Male

DRUGS (4)
  1. LANTUS SOLOSTAR [Suspect]
     Indication: DIABETES MELLITUS
     Dosage: DOSE:15 UNIT(S)
     Route: 058
  2. SOLOSTAR [Concomitant]
     Indication: DIABETES MELLITUS
  3. JANUVIA [Concomitant]
  4. METFORMIN [Concomitant]

REACTIONS (3)
  - Oropharyngeal pain [Unknown]
  - Blood glucose increased [Unknown]
  - Drug dose omission [Unknown]
